FAERS Safety Report 7991463-3 (Version None)
Quarter: 2011Q4

REPORT INFORMATION
  Report Type: 
  Country: None (occurrence: None)
  Receive Date: 20111219
  Receipt Date: 20111210
  Transmission Date: 20120403
  Serious: Yes (Other)
  Sender: FDA-Public Use
  Company Number: CA-JNJFOC-20111205514

PATIENT
  Age: 6 Decade
  Sex: Female

DRUGS (1)
  1. NICORETTE [Suspect]
     Indication: PRODUCT USED FOR UNKNOWN INDICATION
     Route: 048

REACTIONS (5)
  - DEPENDENCE [None]
  - URINARY TRACT INFECTION [None]
  - INTENTIONAL DRUG MISUSE [None]
  - CEREBROVASCULAR ACCIDENT [None]
  - BRAIN NEOPLASM BENIGN [None]
